FAERS Safety Report 14693703 (Version 5)
Quarter: 2023Q1

REPORT INFORMATION
  Report Type: Spontaneous
  Country: JP (occurrence: JP)
  Receive Date: 20180329
  Receipt Date: 20230306
  Transmission Date: 20230418
  Serious: Yes (Hospitalization, Other)
  Sender: FDA-Public Use
  Company Number: JP-MSD-M2018-08828

PATIENT
  Age: 72 Year
  Sex: Female
  Weight: 58 kg

DRUGS (12)
  1. KEYTRUDA [Suspect]
     Active Substance: PEMBROLIZUMAB
     Indication: Lung adenocarcinoma stage IV
     Dosage: 200 MG, EVERY 3 WEEKS
     Route: 041
     Dates: start: 20170824, end: 20171121
  2. KEYTRUDA [Suspect]
     Active Substance: PEMBROLIZUMAB
     Dosage: 200 MILLIGRAM, EVERY 3 WEEKS
     Route: 041
     Dates: start: 20180123, end: 20180123
  3. PREDNISOLONE ACETATE [Concomitant]
     Active Substance: PREDNISOLONE ACETATE
     Dosage: 5 MILLIGRAM, QD
     Route: 048
     Dates: start: 20170824, end: 20180529
  4. PROGRAF [Concomitant]
     Active Substance: TACROLIMUS
     Dosage: 1 MILLIGRAM, QD
     Route: 048
     Dates: start: 20170824, end: 20180529
  5. NEXIUM [Concomitant]
     Active Substance: ESOMEPRAZOLE MAGNESIUM
     Dosage: 20 MILLIGRAM, QD
     Route: 048
     Dates: start: 20170824, end: 20180529
  6. MINODRONIC ACID [Concomitant]
     Active Substance: MINODRONIC ACID
     Dosage: 50 MILLIGRAM, QM
     Route: 048
     Dates: start: 20170824, end: 20180529
  7. ISCOTIN [Concomitant]
     Active Substance: ISONIAZID
     Dosage: 200 MILLIGRAM, QD
     Route: 048
     Dates: start: 20170824, end: 20180529
  8. PYRIDOXAL [Concomitant]
     Active Substance: PYRIDOXAL
     Dosage: 10 MILLIGRAM, QD
     Route: 048
     Dates: start: 20170824, end: 20180529
  9. VESTURIT L [Concomitant]
     Dosage: 200 MILLIGRAM, QD
     Route: 048
     Dates: start: 20170824, end: 20180308
  10. LIMAPROST [Concomitant]
     Active Substance: LIMAPROST
     Dosage: 10 UNK, QD
     Route: 048
  11. SENNOSIDES A AND B [Concomitant]
     Active Substance: SENNOSIDES A AND B
     Dosage: 24 MG, QD
  12. KETOPROFEN [Concomitant]
     Active Substance: KETOPROFEN
     Dosage: 1 DF, PRN
     Route: 065

REACTIONS (7)
  - Colon cancer [Unknown]
  - Breast cancer [Unknown]
  - Systemic lupus erythematosus [Recovered/Resolved]
  - Central nervous system lupus [Recovering/Resolving]
  - Meningitis tuberculous [Recovering/Resolving]
  - Encephalitis autoimmune [Recovering/Resolving]
  - Neuropsychiatric symptoms [Recovering/Resolving]

NARRATIVE: CASE EVENT DATE: 20171101
